FAERS Safety Report 20950767 (Version 16)
Quarter: 2022Q4

REPORT INFORMATION
  Report Type: Report from Study
  Country: IL (occurrence: None)
  Receive Date: 20220613
  Receipt Date: 20221123
  Transmission Date: 20230113
  Serious: Yes (Hospitalization)
  Sender: FDA-Public Use
  Company Number: IL-Eisai Medical Research-EC-2022-116834

PATIENT
  Age: 19 Year
  Sex: Female
  Weight: 103.3 kg

DRUGS (6)
  1. LENVATINIB [Suspect]
     Active Substance: LENVATINIB
     Indication: Neoplasm
     Dosage: 14 MG/M2
     Route: 048
     Dates: start: 20220509, end: 20220605
  2. LENVATINIB [Suspect]
     Active Substance: LENVATINIB
     Dosage: STARTING AT 19 MILLIGRAM (FLUCTUATED DOSE)
     Route: 048
     Dates: start: 20220607
  3. SULFAMETHOXAZOLE\TRIMETHOPRIM [Concomitant]
     Active Substance: SULFAMETHOXAZOLE\TRIMETHOPRIM
     Dates: start: 20210511
  4. DECAPEPTYL (ACETATE) [Concomitant]
     Active Substance: TRIPTORELIN ACETATE
     Dates: start: 20210621, end: 20220904
  5. SYNTHOMYCIN [Concomitant]
     Dates: start: 20220523, end: 20220530
  6. TAROCIDIN [Concomitant]
     Dates: start: 20220523, end: 20220530

REACTIONS (1)
  - Hypertension [Recovered/Resolved]

NARRATIVE: CASE EVENT DATE: 20220530
